FAERS Safety Report 9538270 (Version 2)
Quarter: 2013Q3

REPORT INFORMATION
  Report Type: Spontaneous
  Country: GB (occurrence: GB)
  Receive Date: 20130920
  Receipt Date: 20130920
  Transmission Date: 20140515
  Serious: Yes (Congenital Anomaly)
  Sender: FDA-Public Use
  Company Number: GB-ALVOGEN-CIP95314849

PATIENT
  Age: 15 Month
  Sex: Female

DRUGS (2)
  1. NITROFURANTOIN [Suspect]
     Indication: URINARY TRACT INFECTION
     Dosage: IN UTERO
  2. DEBENDOX /00015801/ [Suspect]
     Indication: VOMITING

REACTIONS (1)
  - Lower motor neurone lesion [Unknown]
